FAERS Safety Report 8893764 (Version 1)
Quarter: 2012Q4

REPORT INFORMATION
  Report Type: 
  Country: US (occurrence: US)
  Receive Date: 20121107
  Receipt Date: 20121107
  Transmission Date: 20130627
  Serious: No
  Sender: FDA-Public Use
  Company Number: US-AMGEN-USASP2011061836

PATIENT
  Age: 51 Year
  Sex: Female
  Weight: 93.42 kg

DRUGS (7)
  1. ENBREL [Suspect]
     Indication: PRODUCT USED FOR UNKNOWN INDICATION
     Dosage: 50 mg, 2 times/wk
     Route: 058
  2. AMLODIPINE [Concomitant]
     Dosage: 10 mg, UNK
     Route: 048
  3. LISINOPRIL [Concomitant]
     Dosage: 2.5 mg, UNK
     Route: 048
  4. METFORMIN [Concomitant]
     Dosage: 1000 mg, UNK
     Route: 048
  5. HYDROCHLOROTH [Concomitant]
     Dosage: 12.5 mg, UNK
     Route: 048
  6. HYDROXYZINE [Concomitant]
     Dosage: 25 mg, UNK
     Route: 048
  7. UNITHROID [Concomitant]
     Dosage: 137 mug, UNK
     Route: 048

REACTIONS (1)
  - Nasopharyngitis [Unknown]
